FAERS Safety Report 11087518 (Version 2)
Quarter: 2015Q2

REPORT INFORMATION
  Report Type: Spontaneous
  Country: FR (occurrence: FR)
  Receive Date: 20150504
  Receipt Date: 20150602
  Transmission Date: 20150821
  Serious: Yes (Hospitalization)
  Sender: FDA-Public Use
  Company Number: FR-009507513-1504FRA024138

PATIENT
  Age: 84 Year
  Sex: Female

DRUGS (5)
  1. ETOPOSIDE. [Suspect]
     Active Substance: ETOPOSIDE
     Indication: OSTEOSARCOMA
     Dosage: 105 MG, BY CYCLE
     Route: 042
     Dates: start: 20150105
  2. EMEND [Suspect]
     Active Substance: APREPITANT
     Indication: VOMITING
     Dosage: 125 MG, BY CYCLE
     Route: 048
     Dates: start: 20150105, end: 20150107
  3. IFOSFAMIDE. [Suspect]
     Active Substance: IFOSFAMIDE
     Indication: OSTEOSARCOMA
     Dosage: 4200 MG, QD
     Route: 042
     Dates: start: 20150105, end: 20150105
  4. IFOSFAMIDE. [Suspect]
     Active Substance: IFOSFAMIDE
     Dosage: UNK
     Dates: start: 20150211
  5. UROMITEXAN [Suspect]
     Active Substance: MESNA
     Indication: OSTEOSARCOMA
     Dosage: 5040 MG, BY CYCLE
     Route: 042
     Dates: start: 20150105

REACTIONS (1)
  - Encephalopathy [Recovered/Resolved]

NARRATIVE: CASE EVENT DATE: 20150105
